FAERS Safety Report 16121062 (Version 3)
Quarter: 2019Q2

REPORT INFORMATION
  Report Type: Report from Study
  Country: FR (occurrence: FR)
  Receive Date: 20190327
  Receipt Date: 20190510
  Transmission Date: 20190711
  Serious: Yes (Hospitalization, Other)
  Sender: FDA-Public Use
  Company Number: FR-ROCHE-2285752

PATIENT
  Age: 62 Year
  Sex: Female

DRUGS (2)
  1. BEVACIZUMAB. [Suspect]
     Active Substance: BEVACIZUMAB
     Indication: CERVIX CARCINOMA
     Dosage: ON 29/SEP/2018, SHE RECEIVED THE LAST DOSE OF BEVACIZUMAB PRIOR TO SERIOUS ADVERSE EVENT.
     Route: 065
     Dates: start: 20161116
  2. BLINDED OLAPARIB [Suspect]
     Active Substance: OLAPARIB
     Indication: CERVIX CARCINOMA
     Dosage: DOSE OF LAST ADMINISTRATION BEFORE SAE: 28/NOV/2018
     Route: 065
     Dates: start: 20161116

REACTIONS (4)
  - Cholelithiasis [Not Recovered/Not Resolved]
  - Hypertension [Recovered/Resolved]
  - Chemical peritonitis [Recovered/Resolved]
  - Cholecystitis acute [Recovered/Resolved]

NARRATIVE: CASE EVENT DATE: 20180110
